FAERS Safety Report 19163961 (Version 1)
Quarter: 2021Q2

REPORT INFORMATION
  Report Type: Spontaneous
  Country: US (occurrence: US)
  Receive Date: 20210420
  Receipt Date: 20210420
  Transmission Date: 20210717
  Serious: Yes (Hospitalization)
  Sender: FDA-Public Use
  Company Number: None

PATIENT
  Age: 39 Year
  Sex: Female

DRUGS (1)
  1. HUMIRA [Suspect]
     Active Substance: ADALIMUMAB
     Indication: CROHN^S DISEASE
     Route: 058
     Dates: start: 202004

REACTIONS (5)
  - Migraine [None]
  - Vision blurred [None]
  - Hypoacusis [None]
  - Agitation [None]
  - Muscle spasms [None]

NARRATIVE: CASE EVENT DATE: 202101
